FAERS Safety Report 22069852 (Version 1)
Quarter: 2023Q1

REPORT INFORMATION
  Report Type: Spontaneous
  Country: US (occurrence: US)
  Receive Date: 20230307
  Receipt Date: 20230307
  Transmission Date: 20230418
  Serious: No
  Sender: FDA-Public Use
  Company Number: US-AMNEAL PHARMACEUTICALS-2022-AMRX-00726

PATIENT
  Age: 68 Year
  Sex: Male

DRUGS (1)
  1. RYTARY [Suspect]
     Active Substance: CARBIDOPA\LEVODOPA
     Indication: Abnormal dreams
     Dosage: 2 CAPSULES, 4X/DAY
     Route: 048
     Dates: start: 20220216, end: 20220224

REACTIONS (3)
  - Therapy non-responder [Unknown]
  - Cognitive disorder [Recovered/Resolved]
  - Fall [Unknown]

NARRATIVE: CASE EVENT DATE: 20220224
